FAERS Safety Report 24785380 (Version 1)
Quarter: 2024Q4

REPORT INFORMATION
  Report Type: Spontaneous
  Country: US (occurrence: None)
  Receive Date: 20241227
  Receipt Date: 20241227
  Transmission Date: 20250115
  Serious: No
  Sender: Public
  Company Number: None

PATIENT
  Sex: 0

DRUGS (1)
  1. BRIXADI [Suspect]
     Active Substance: BUPRENORPHINE

REACTIONS (8)
  - Tachycardia [None]
  - Hot flush [None]
  - Feeling cold [None]
  - Pain [None]
  - Withdrawal syndrome [None]
  - Abdominal pain upper [None]
  - Nausea [None]
  - Rhinorrhoea [None]
